FAERS Safety Report 25489731 (Version 2)
Quarter: 2025Q2

REPORT INFORMATION
  Report Type: Spontaneous
  Country: US (occurrence: US)
  Receive Date: 20250627
  Receipt Date: 20250629
  Transmission Date: 20250716
  Serious: No
  Sender: GALDERMA
  Company Number: US-GALDERMA-US2025005125

PATIENT

DRUGS (8)
  1. PROACTIV MD ADAPALENE ACNE TREATMENT [Suspect]
     Active Substance: ADAPALENE
     Indication: Acne
     Route: 061
  2. PROACTIV CLEAN MINERAL ACNE CLEANSER [Concomitant]
     Active Substance: SULFUR
     Indication: Acne
     Route: 061
  3. AZELAIC ACID [Concomitant]
     Active Substance: AZELAIC ACID
     Indication: Acne
     Route: 061
  4. PROACTIV CLEAN ACNE CLEARING HYDRATOR [Concomitant]
     Active Substance: SALICYLIC ACID
     Indication: Acne
     Route: 061
  5. PROACTIV ACNE BODY WASH [Concomitant]
     Active Substance: SALICYLIC ACID
     Indication: Acne
     Route: 061
  6. PROACTIV BLACKHEAD DISSOLVING [Concomitant]
     Active Substance: SALICYLIC ACID
     Indication: Acne
     Route: 061
  7. Proactiv Smooth + Bright Resurfacing Mask [Concomitant]
     Indication: Acne
     Route: 061
  8. Proactiv Zits Happen Patches [Concomitant]
     Indication: Acne
     Route: 061

REACTIONS (1)
  - Acne [Unknown]
